FAERS Safety Report 4696663-6 (Version None)
Quarter: 2005Q2

REPORT INFORMATION
  Report Type: 
  Country: None (occurrence: None)
  Receive Date: 20050620
  Receipt Date: 20050302
  Transmission Date: 20051028
  Serious: No
  Sender: FDA-Public Use
  Company Number: US-YAMANOUCHI-YPA20050112

PATIENT
  Age: 87 Year
  Sex: Female

DRUGS (4)
  1. VESICARE [Suspect]
     Indication: HYPERTONIC BLADDER
     Dosage: 5 MG PO
     Route: 048
     Dates: start: 20050201
  2. ACCUPRIL [Concomitant]
  3. CELEXA [Concomitant]
  4. ECOTRIN [Concomitant]

REACTIONS (3)
  - CONSTIPATION [None]
  - DRY EYE [None]
  - DRY MOUTH [None]
